FAERS Safety Report 4832641-1 (Version None)
Quarter: 2005Q4

REPORT INFORMATION
  Report Type: 
  Country: None (occurrence: None)
  Receive Date: 20051117
  Receipt Date: 20051117
  Transmission Date: 20060501
  Serious: Yes (Life-Threatening, Hospitalization)
  Sender: FDA-Public Use
  Company Number: None

PATIENT
  Age: 74 Year
  Sex: Female

DRUGS (2)
  1. TEMODAR [Suspect]
     Indication: BRAIN NEOPLASM
     Dosage: 100 MG QD X 30 DAYS PO
     Route: 048
     Dates: start: 20050930
  2. RADIATION [Concomitant]

REACTIONS (1)
  - PLATELET COUNT DECREASED [None]
